FAERS Safety Report 18273221 (Version 1)
Quarter: 2020Q3

REPORT INFORMATION
  Report Type: Spontaneous
  Country: US (occurrence: US)
  Receive Date: 20200915
  Receipt Date: 20200915
  Transmission Date: 20201103
  Serious: No
  Sender: FDA-Public Use
  Company Number: None

PATIENT
  Age: 14 Year
  Sex: Male

DRUGS (1)
  1. LUPRON DEPOT [Suspect]
     Active Substance: LEUPROLIDE ACETATE
     Dosage: FREQUENCY: OTHER
     Route: 058
     Dates: start: 202009

REACTIONS (6)
  - Headache [None]
  - Nausea [None]
  - Crying [None]
  - Myalgia [None]
  - Asthenia [None]
  - Aphasia [None]

NARRATIVE: CASE EVENT DATE: 20200915
